FAERS Safety Report 14532960 (Version 4)
Quarter: 2018Q1

REPORT INFORMATION
  Report Type: Spontaneous
  Country: JP (occurrence: JP)
  Receive Date: 20180215
  Receipt Date: 20180308
  Transmission Date: 20180509
  Serious: Yes (Life-Threatening, Other)
  Sender: FDA-Public Use
  Company Number: JP-UCBSA-2018004838

PATIENT
  Age: 72 Year
  Sex: Female

DRUGS (7)
  1. METGLUCO [Concomitant]
     Active Substance: METFORMIN HYDROCHLORIDE
     Indication: PRODUCT USED FOR UNKNOWN INDICATION
     Dosage: 500 MG, ONCE DAILY (QD)
     Route: 048
  2. E KEPPRA [Suspect]
     Active Substance: LEVETIRACETAM
     Dosage: 1500 MG, DAILY DOSE
     Route: 048
     Dates: start: 20161207, end: 20171221
  3. E KEPPRA [Suspect]
     Active Substance: LEVETIRACETAM
     Dosage: 2000 MG DAILY DOSE
     Route: 048
     Dates: start: 20171222, end: 20180131
  4. AMLODIPINE [Concomitant]
     Active Substance: AMLODIPINE BESYLATE
     Indication: PRODUCT USED FOR UNKNOWN INDICATION
     Dosage: 10 MG, ONCE DAILY (QD)
     Route: 048
  5. GLIMEPIRIDE. [Concomitant]
     Active Substance: GLIMEPIRIDE
     Indication: PRODUCT USED FOR UNKNOWN INDICATION
     Dosage: 1 MG, ONCE DAILY (QD)
     Route: 048
  6. E KEPPRA [Suspect]
     Active Substance: LEVETIRACETAM
     Indication: EPILEPSY
     Dosage: 1000 MG DAILY DOSE
     Route: 048
     Dates: start: 20160819, end: 20161206
  7. PREDNISOLONE. [Concomitant]
     Active Substance: PREDNISOLONE
     Indication: HEPATIC ENZYME INCREASED
     Dosage: 20 MG, UNK

REACTIONS (4)
  - Platelet count increased [Recovered/Resolved]
  - C-reactive protein increased [Recovered/Resolved]
  - Pyrexia [Recovered/Resolved]
  - Hepatic enzyme increased [Recovering/Resolving]

NARRATIVE: CASE EVENT DATE: 20180113
